FAERS Safety Report 5484365-8 (Version None)
Quarter: 2007Q4

REPORT INFORMATION
  Report Type: 
  Country: None (occurrence: None)
  Receive Date: 20071009
  Receipt Date: 20070917
  Transmission Date: 20080405
  Serious: Yes (Death)
  Sender: FDA-Public Use
  Company Number: ENT 2007-0157

PATIENT
  Age: 62 Year
  Sex: Female

DRUGS (10)
  1. COMTAN [Suspect]
     Indication: PARKINSON'S DISEASE
     Dosage: 300 MG (100 MG, 3 IN 1 D) ORAL
     Route: 048
     Dates: start: 20070809
  2. PANTOSIN [Suspect]
     Dosage: 300 MG ORAL
     Route: 048
  3. BI-SIFROL [Concomitant]
  4. NEODOPASOL [Concomitant]
  5. DOPS [Concomitant]
  6. DEPAS [Concomitant]
  7. CLONAZEPAM [Concomitant]
  8. MAGLAX [Concomitant]
  9. LAC B [Concomitant]
  10. ALFAROL [Concomitant]

REACTIONS (9)
  - CARDIO-RESPIRATORY ARREST [None]
  - CARDIOGENIC SHOCK [None]
  - CHEST INJURY [None]
  - FALL [None]
  - GENERAL PHYSICAL HEALTH DETERIORATION [None]
  - HAEMOLYSIS [None]
  - ORGAN FAILURE [None]
  - SUDDEN DEATH [None]
  - WHEELCHAIR USER [None]
